FAERS Safety Report 9254307 (Version 4)
Quarter: 2014Q1

REPORT INFORMATION
  Report Type: Spontaneous
  Country: JP (occurrence: JP)
  Receive Date: 20130425
  Receipt Date: 20140129
  Transmission Date: 20141002
  Serious: Yes (Life-Threatening, Hospitalization)
  Sender: FDA-Public Use
  Company Number: JP-COVIDIEN/TYCO HEALTHCARE/MALLINCKRODT-T201301757

PATIENT
  Age: 74 Year
  Sex: Male
  Weight: 50 kg

DRUGS (8)
  1. OPTIRAY [Suspect]
     Indication: COMPUTERISED TOMOGRAM
     Dosage: 100 ML, SINGLE
     Route: 042
     Dates: start: 20130412, end: 20130412
  2. WARFARIN POTASSIUM [Concomitant]
     Indication: ATRIAL FIBRILLATION
     Dosage: 1.5 MG, QD
     Route: 048
  3. CARVEDILOL [Concomitant]
     Indication: ATRIAL FIBRILLATION
     Dosage: 2.5 MG, QD
     Route: 048
  4. AMLODIPINE BESILATE [Concomitant]
     Indication: ATRIAL FIBRILLATION
     Dosage: 5 MG, QD
     Route: 048
     Dates: start: 20130418
  5. OLMESARTAN MEDOXOMIL [Concomitant]
     Indication: HYPERTENSION
     Dosage: 20 MG, BID
     Route: 048
  6. GLIMEPIRIDE [Concomitant]
     Indication: DIABETES MELLITUS
     Dosage: 0.5 MG, BID
     Route: 048
  7. ALOGLIPTIN BENZOATE [Concomitant]
     Indication: DIABETES MELLITUS
     Dosage: 12.5 MG, QD
     Route: 048
  8. VOGLIBOSE [Concomitant]
     Indication: DIABETES MELLITUS
     Dosage: 0.2 MG, TID
     Route: 048
     Dates: start: 20130312

REACTIONS (1)
  - Anaphylactoid shock [Recovered/Resolved]
